FAERS Safety Report 17526725 (Version 1)
Quarter: 2020Q1

REPORT INFORMATION
  Report Type: Spontaneous
  Country: US (occurrence: US)
  Receive Date: 20200311
  Receipt Date: 20200311
  Transmission Date: 20200409
  Serious: Yes (Hospitalization)
  Sender: FDA-Public Use
  Company Number: None

PATIENT
  Age: 60 Year
  Sex: Female

DRUGS (9)
  1. SIROLIMUS. [Suspect]
     Active Substance: SIROLIMUS
     Indication: CARCINOID TUMOUR
     Route: 048
     Dates: start: 20180209
  2. AMITRIPTYLIN [Concomitant]
     Active Substance: AMITRIPTYLINE
  3. LEVOTHYROXIN [Concomitant]
     Active Substance: LEVOTHYROXINE
  4. ZEGERID [Concomitant]
     Active Substance: OMEPRAZOLE\SODIUM BICARBONATE
  5. SIROLIMUS. [Suspect]
     Active Substance: SIROLIMUS
     Indication: CARCINOID TUMOUR
     Route: 048
     Dates: start: 20180209
  6. ASPIRIN. [Concomitant]
     Active Substance: ASPIRIN
  7. DAPSONE. [Concomitant]
     Active Substance: DAPSONE
  8. ESCITALOPRAM [Concomitant]
     Active Substance: ESCITALOPRAM OXALATE
  9. FUROSEMIDE. [Concomitant]
     Active Substance: FUROSEMIDE

REACTIONS (1)
  - Hernia repair [None]

NARRATIVE: CASE EVENT DATE: 20200306
